FAERS Safety Report 5952974-5 (Version None)
Quarter: 2008Q4

REPORT INFORMATION
  Report Type: 
  Country: None (occurrence: None)
  Receive Date: 20081114
  Receipt Date: 20081105
  Transmission Date: 20090506
  Serious: Yes (Life-Threatening)
  Sender: FDA-Public Use
  Company Number: JP-BAYER-200812467BYL

PATIENT
  Age: 74 Year
  Sex: Female
  Weight: 65 kg

DRUGS (5)
  1. CIPROXAN-I.V. [Suspect]
     Indication: SEPSIS
     Dosage: TOTAL DAILY DOSE: 300 MG  UNIT DOSE: 300 MG
     Route: 041
     Dates: start: 20081009, end: 20081009
  2. NOVOLIN R [Concomitant]
     Indication: DIABETES MELLITUS
     Dosage: AS USED: 36 IU
     Route: 058
  3. LIPITOR [Concomitant]
     Dosage: AS USED: 10 MG
     Route: 048
  4. MICARDIS [Concomitant]
     Dosage: AS USED: 40 MG
     Route: 048
  5. STARSIS [Concomitant]
     Indication: DIABETES MELLITUS
     Dosage: AS USED: 90 MG
     Route: 048

REACTIONS (2)
  - DYSPNOEA [None]
  - NAUSEA [None]
